FAERS Safety Report 9802528 (Version 8)
Quarter: 2017Q1

REPORT INFORMATION
  Report Type: Report from Study
  Country: CA (occurrence: CA)
  Receive Date: 20140107
  Receipt Date: 20170209
  Transmission Date: 20170429
  Serious: Yes (Hospitalization, Other)
  Sender: FDA-Public Use
  Company Number: CA-ROCHE-1328157

PATIENT
  Age: 58 Year
  Sex: Male
  Weight: 64.4 kg

DRUGS (16)
  1. TYLENOL [Concomitant]
     Active Substance: ACETAMINOPHEN
     Route: 048
     Dates: start: 20140128
  2. SOLU-MEDROL [Concomitant]
     Active Substance: METHYLPREDNISOLONE SODIUM SUCCINATE
     Route: 042
     Dates: start: 20140128
  3. PULMICORT TURBUHALER [Concomitant]
     Active Substance: BUDESONIDE
  4. VITAMIN C [Concomitant]
     Active Substance: ASCORBIC ACID
  5. DEXILANT [Concomitant]
     Active Substance: DEXLANSOPRAZOLE
  6. NASONEX [Concomitant]
     Active Substance: MOMETASONE FUROATE
  7. FOLIC ACID. [Concomitant]
     Active Substance: FOLIC ACID
  8. PREDNISONE. [Concomitant]
     Active Substance: PREDNISONE
  9. SULFATRIM [Concomitant]
     Active Substance: SULFAMETHOXAZOLE\TRIMETHOPRIM
  10. TAMSULOSIN [Concomitant]
     Active Substance: TAMSULOSIN
  11. TYLENOL WITH CODEINE [Concomitant]
     Active Substance: ACETAMINOPHEN\CODEINE PHOSPHATE
  12. RITUXAN [Suspect]
     Active Substance: RITUXIMAB
     Indication: GRANULOMATOSIS WITH POLYANGIITIS
     Route: 042
     Dates: start: 20130909
  13. BENADRYL [Concomitant]
     Active Substance: DIPHENHYDRAMINE HYDROCHLORIDE
     Route: 048
     Dates: start: 20140128
  14. ZOPICLONE [Concomitant]
     Active Substance: ZOPICLONE
  15. LORAZEPAM. [Concomitant]
     Active Substance: LORAZEPAM
  16. METHOTREXATE. [Concomitant]
     Active Substance: METHOTREXATE

REACTIONS (7)
  - Drug effect incomplete [Unknown]
  - Influenza like illness [Recovered/Resolved]
  - Pharyngitis [Recovered/Resolved]
  - Weight decreased [Unknown]
  - Immunosuppression [Unknown]
  - Sinus congestion [Not Recovered/Not Resolved]
  - Lower respiratory tract infection [Unknown]

NARRATIVE: CASE EVENT DATE: 20131129
